FAERS Safety Report 10179506 (Version 2)
Quarter: 2014Q2

REPORT INFORMATION
  Report Type: Spontaneous
  Country: US (occurrence: US)
  Receive Date: 20140519
  Receipt Date: 20140529
  Transmission Date: 20141212
  Serious: Yes (Hospitalization)
  Sender: FDA-Public Use
  Company Number: US-BAXTER-2014BAX024523

PATIENT
  Sex: Male

DRUGS (4)
  1. DIANEAL PD2 (ULTRABAG) [Suspect]
     Indication: RENAL FAILURE CHRONIC
     Dosage: 4-5 EXCHANGES PER DAY
     Route: 033
     Dates: start: 2008
  2. NIFEDIPINE [Concomitant]
     Indication: HYPERTENSION
  3. CLONIDINE [Concomitant]
     Indication: HYPERTENSION
  4. ATENOLOL [Concomitant]
     Indication: HYPERTENSION

REACTIONS (1)
  - Hypertension [Recovered/Resolved]
